FAERS Safety Report 6459471-1 (Version None)
Quarter: 2009Q4

REPORT INFORMATION
  Report Type: 
  Country: None (occurrence: None)
  Receive Date: 20091127
  Receipt Date: 20091116
  Transmission Date: 20100525
  Serious: Yes (Hospitalization)
  Sender: FDA-Public Use
  Company Number: DE-ELI_LILLY_AND_COMPANY-DE200911004068

PATIENT
  Age: 68 Year
  Sex: Male

DRUGS (9)
  1. CYMBALTA [Suspect]
     Indication: DEPRESSION
     Dosage: 30 MG, UNK
     Dates: start: 20090805, end: 20090809
  2. CYMBALTA [Suspect]
     Dosage: 60 MG, UNK
     Route: 048
     Dates: start: 20090810, end: 20090817
  3. LORAZEPAM [Concomitant]
     Dosage: 4 MG, UNK
     Route: 048
  4. MADOPAR [Concomitant]
     Dosage: 250 MG, UNK
     Route: 048
     Dates: start: 20080727
  5. LITHIUM CARBONATE [Concomitant]
     Dosage: 250 MG, UNK
     Route: 048
  6. SEROQUEL [Concomitant]
     Dosage: 50 MG, UNK
     Dates: start: 20090731
  7. TAMSULOSIN [Concomitant]
     Dosage: 0.4 MG, UNK
     Route: 048
     Dates: start: 20090609
  8. FINASTERIDE [Concomitant]
     Dosage: 5 MG, UNK
     Route: 048
     Dates: start: 20090609
  9. XIMOVAN [Concomitant]
     Dates: start: 20090728

REACTIONS (3)
  - DRUG INTERACTION [None]
  - HYPOTENSION [None]
  - VERTIGO [None]
